FAERS Safety Report 13229517 (Version 2)
Quarter: 2017Q1

REPORT INFORMATION
  Report Type: Report from Study
  Country: UA (occurrence: UA)
  Receive Date: 20170214
  Receipt Date: 20170222
  Transmission Date: 20170428
  Serious: Yes (Life-Threatening)
  Sender: FDA-Public Use
  Company Number: UA-ROCHE-1892398

PATIENT
  Age: 64 Year
  Sex: Female

DRUGS (37)
  1. DEMEROL [Concomitant]
     Active Substance: MEPERIDINE HYDROCHLORIDE
     Indication: PROPHYLAXIS
     Dosage: FURTHER DOSES ON: 27/MAR/2014, 17/APR/2014, 07/MAY/2014, 29/MAY/2014, 19/JUN/2014, 10/JUL/2014, 31/J
     Route: 065
     Dates: start: 20140306
  2. HEPABENE [Concomitant]
     Indication: PROPHYLAXIS
     Route: 065
     Dates: start: 20140312
  3. VITAMIN B12 [Concomitant]
     Active Substance: CYANOCOBALAMIN
     Route: 065
     Dates: start: 20140419
  4. TRASTUZUMAB [Suspect]
     Active Substance: TRASTUZUMAB
     Dosage: MAINTAINANCE DOSE: DAY 1 OR DAY 2
     Route: 042
  5. NEXIUM [Concomitant]
     Active Substance: ESOMEPRAZOLE MAGNESIUM
     Indication: PROPHYLAXIS
     Route: 065
     Dates: start: 20140312
  6. FERRUM LEK (UKRAINE) [Concomitant]
     Dosage: 19/APR/2014,
     Route: 065
     Dates: start: 20140330
  7. VITAMIN B12 [Concomitant]
     Active Substance: CYANOCOBALAMIN
     Route: 065
     Dates: start: 20140330
  8. PERTUZUMAB [Suspect]
     Active Substance: PERTUZUMAB
     Dosage: MAINTAINANCE DOSE: ON DAY 1 OR DAY 2
     Route: 042
  9. METHYLURACIL [Concomitant]
     Active Substance: THYMINE
     Route: 065
     Dates: start: 20170208
  10. STEATEL [Concomitant]
     Indication: PROPHYLAXIS
     Dosage: FURTHER DOSES ON 27/MAR/2014, 05/FEB/2015, 05/FEB/2016, 18/MAR/2016,
     Route: 065
     Dates: start: 20140306
  11. DEXAMETHASON [Concomitant]
     Active Substance: DEXAMETHASONE
     Indication: PROPHYLAXIS
     Dosage: 27/MAR/2014, 17/APR/2014, 07/MAY/2014, 29/MAY/2014, 19/JUN/2014, 10/JUL/2014, 31/JUL/2014, 21/AUG/20
     Route: 065
     Dates: start: 20140306, end: 20170211
  12. MILDRONAT [Concomitant]
     Indication: PROPHYLAXIS
     Dosage: 27/MAR/2014, 17/APR/2014, 07/MAY/2014, 29/MAY/2014, 19/JUN/2014, 10/JUL/2014, 31/JUL/2014, 21/AUG/20
     Route: 065
     Dates: start: 20140307
  13. CORVITIN [Concomitant]
     Indication: PROPHYLAXIS
     Route: 065
     Dates: start: 20140710
  14. CYANOCOBALAMIN. [Concomitant]
     Active Substance: CYANOCOBALAMIN
     Dosage: 04/APR/2015
     Route: 065
     Dates: start: 20141115
  15. ONDANSETRON [Concomitant]
     Active Substance: ONDANSETRON
     Indication: PROPHYLAXIS
     Dosage: 08/MAR/2014, 27/MAR/2014, 29/MAR/2014, 17/APR/2014, 18/APR/2014, 07/MAY/2014, 08/MAY/2014, 29/MAY/20
     Route: 065
     Dates: start: 20140306
  16. CARNITINUM [Concomitant]
     Indication: PROPHYLAXIS
     Dosage: 27/MAR/2014, 17/APR/2014, 07/MAY/2014, 29/MAY/2014, 19/JUN/2014, 31/JUL/2014, 22/AUG/2014, 11/SEP/20
     Route: 065
     Dates: start: 20140417
  17. ZOFRAN [Concomitant]
     Active Substance: ONDANSETRON HYDROCHLORIDE
     Indication: PREMEDICATION
     Route: 065
     Dates: start: 20141225
  18. PERTUZUMAB [Suspect]
     Active Substance: PERTUZUMAB
     Indication: HER-2 POSITIVE BREAST CANCER
     Dosage: LOADING DOSE: ON DAY 1 OR DAY 2
     Route: 042
  19. TRASTUZUMAB [Suspect]
     Active Substance: TRASTUZUMAB
     Indication: HER-2 POSITIVE BREAST CANCER
     Dosage: LOADING DOSE: ON DAY 1 OR DAY 2
     Route: 042
  20. TEVAGRASTIM [Concomitant]
     Active Substance: FILGRASTIM
     Route: 065
     Dates: start: 20170208, end: 20170209
  21. QUERCETIN [Concomitant]
     Active Substance: QUERCETIN
     Indication: PROPHYLAXIS
     Dosage: 27/MAR/2014, 17/APR/2014, 07/MAY/2014, 29/MAY/2014, 19/JUN/2014, 10/JUL/2014, 31/JUL/2014, 21/AUG/20
     Route: 065
     Dates: start: 20140307
  22. SODIUM CHLORIDE. [Concomitant]
     Active Substance: SODIUM CHLORIDE
     Dosage: 05/FEB/2016, 18/MAR/2016
     Route: 065
     Dates: start: 20140308
  23. NEURORUBINE [Concomitant]
     Indication: PROPHYLAXIS
     Route: 065
     Dates: start: 20140312
  24. ARANESP [Concomitant]
     Active Substance: DARBEPOETIN ALFA
     Route: 065
     Dates: start: 20140420
  25. AUGMENTIN [Concomitant]
     Active Substance: AMOXICILLIN\CLAVULANATE POTASSIUM
     Route: 065
     Dates: start: 20150317
  26. MALTOFER (UKRAINE) [Concomitant]
     Route: 065
     Dates: start: 20170208
  27. FILSTIM [Concomitant]
     Route: 065
     Dates: start: 20140221
  28. FAMOTIDIN [Concomitant]
     Indication: PREMEDICATION
     Dosage: 27/MAR/2014, 17/APR/2014, 07/MAY/2014, 29/MAY/2014, 19/JUN/2014, 10/JUL/2014, 31/JUL/2014, 21/AUG/20
     Route: 065
     Dates: start: 20141023
  29. CARVEDILOL. [Concomitant]
     Active Substance: CARVEDILOL
     Route: 065
     Dates: start: 20150114
  30. ACETYLCYSTEINUM [Concomitant]
     Route: 065
     Dates: start: 20150323
  31. NUCLEINAT [Concomitant]
     Route: 065
     Dates: start: 20140221
  32. IOHEXOLUM [Concomitant]
     Route: 065
     Dates: start: 20141111
  33. L-LYSINI AESCINAS [Concomitant]
     Indication: PROPHYLAXIS
     Route: 065
     Dates: start: 20160726
  34. PACLITAXEL. [Suspect]
     Active Substance: PACLITAXEL
     Indication: HER-2 POSITIVE BREAST CANCER
     Route: 065
  35. PARACETAMOL [Concomitant]
     Active Substance: ACETAMINOPHEN
     Indication: PROPHYLAXIS
     Dosage: FURTHER DOSES ON 27/MAR/2014, 17/APR/2014, 07/MAY/2014, 29/MAY/2014, 19/JUN/2014, 10/JUL/2014, 31/JU
     Route: 065
     Dates: start: 20140306
  36. MILDRONAT [Concomitant]
     Dosage: 08/MAY/2014, 30/MAY/2014, 20/JUN/2014, 11/JUL/2014, 01/AUG/2014, 22/AUG/2014, 12/SEP/2014, 03/OCT/20
     Route: 065
     Dates: start: 20140417
  37. ARANESP [Concomitant]
     Active Substance: DARBEPOETIN ALFA
     Route: 065
     Dates: start: 20140406

REACTIONS (1)
  - Neutrophil count decreased [Recovered/Resolved]

NARRATIVE: CASE EVENT DATE: 20170207
